FAERS Safety Report 8144277-8 (Version None)
Quarter: 2012Q1

REPORT INFORMATION
  Report Type: 
  Country: None (occurrence: None)
  Receive Date: 20120217
  Receipt Date: 20120208
  Transmission Date: 20120608
  Serious: Yes (Other)
  Sender: FDA-Public Use
  Company Number: US-SANOFI-AVENTIS-2011SA035327

PATIENT
  Age: 81 Year
  Sex: Female
  Weight: 56 kg

DRUGS (25)
  1. LIPITOR [Concomitant]
     Route: 048
  2. RESTASIS [Concomitant]
     Dosage: AS DIRECTED
  3. PRINIVIL [Concomitant]
     Route: 048
  4. CEPHALEXIN [Concomitant]
     Route: 048
  5. BUPROPION HYDROCHLORIDE [Concomitant]
     Route: 048
  6. IMURAN [Concomitant]
     Route: 048
  7. MULTAQ [Suspect]
     Route: 048
     Dates: start: 20101202, end: 20101228
  8. LASIX [Concomitant]
  9. PREDNISONE [Concomitant]
     Route: 048
  10. NOVOLIN N [Concomitant]
     Dosage: 14 UNITS IN AM, 5 UNITS IN PM
  11. DOCUSATE SODIUM [Concomitant]
     Route: 048
  12. LOPRESSOR [Concomitant]
     Dates: start: 20101201
  13. ENALAPRIL [Concomitant]
     Dates: start: 20010101
  14. PREMARIN [Concomitant]
     Route: 048
  15. SYNTHROID [Concomitant]
     Dosage: .088
     Route: 048
  16. TRAMADOL HCL [Concomitant]
     Indication: PAIN
     Dosage: 6 TIMES DAILY
  17. PROTONIX [Concomitant]
     Route: 048
  18. AQUAPHOR HEALING OINTMENT [Concomitant]
     Dosage: APPLIED TO LEG
     Route: 061
  19. TIZANIDINE HCL [Concomitant]
     Route: 048
  20. COUMADIN [Concomitant]
     Dosage: 2.5 MG, 1 TO 2 TABLETS
     Route: 048
  21. MECLIZINE [Concomitant]
  22. METRONIDAZOLE [Concomitant]
     Route: 048
  23. DIGOXIN [Concomitant]
  24. ALDACTONE [Concomitant]
  25. NOVOLIN R [Concomitant]
     Dosage: 3 UNITS IN AM, 7 UNITS IN PM

REACTIONS (3)
  - HALLUCINATION [None]
  - CLOSTRIDIUM DIFFICILE COLITIS [None]
  - WEIGHT DECREASED [None]
